FAERS Safety Report 4906007-X (Version None)
Quarter: 2006Q1

REPORT INFORMATION
  Report Type: 
  Country: None (occurrence: None)
  Receive Date: 20060206
  Receipt Date: 20060126
  Transmission Date: 20060701
  Serious: Yes (Hospitalization)
  Sender: FDA-Public Use
  Company Number: 2006012722

PATIENT
  Age: 77 Year
  Sex: Female
  Weight: 63.5036 kg

DRUGS (3)
  1. NASALCROM [Suspect]
     Indication: HYPERSENSITIVITY
     Dosage: 2 SPRAYS PER NOSTRIL 2X A DAY AS NEEDED, NASAL
     Route: 045
     Dates: start: 20050101, end: 20060122
  2. ALENDRONATE SODIUM [Concomitant]
  3. ATORVASTATIN CALCIUM [Concomitant]

REACTIONS (1)
  - EPISTAXIS [None]
